FAERS Safety Report 5448112-8 (Version None)
Quarter: 2007Q3

REPORT INFORMATION
  Report Type: 
  Country: None (occurrence: None)
  Receive Date: 20070803
  Receipt Date: 20070425
  Transmission Date: 20080115
  Serious: Yes (Other)
  Sender: FDA-Public Use
  Company Number: 200711076BWH

PATIENT
  Age: 44 Year
  Sex: Female

DRUGS (2)
  1. NEXAVAR [Suspect]
     Indication: LUNG NEOPLASM MALIGNANT
     Dosage: 400 MG, BID, ORAL
     Route: 048
     Dates: start: 20070323
  2. ADVIL [Concomitant]

REACTIONS (10)
  - BURNING SENSATION [None]
  - HAEMOPTYSIS [None]
  - LOCALISED INFECTION [None]
  - MUSCULOSKELETAL STIFFNESS [None]
  - PAIN IN EXTREMITY [None]
  - PALMAR-PLANTAR ERYTHRODYSAESTHESIA SYNDROME [None]
  - RASH MACULAR [None]
  - SKIN INFECTION [None]
  - SKIN IRRITATION [None]
  - SKIN SWELLING [None]
